FAERS Safety Report 19714599 (Version 1)
Quarter: 2021Q3

REPORT INFORMATION
  Report Type: Report from Study
  Country: None (occurrence: ZA)
  Receive Date: 20210818
  Receipt Date: 20210818
  Transmission Date: 20211014
  Serious: Yes (Hospitalization, Other)
  Sender: FDA-Public Use
  Company Number: ZA-ABBVIE-21K-143-4038793-00

PATIENT
  Age: 66 Year
  Sex: Female

DRUGS (1)
  1. HUMIRA [Suspect]
     Active Substance: ADALIMUMAB
     Indication: RHEUMATOID ARTHRITIS
     Route: 058
     Dates: start: 20210317

REACTIONS (4)
  - Wrist fracture [Unknown]
  - Seizure [Recovered/Resolved]
  - Joint arthroplasty [Unknown]
  - Fall [Unknown]

NARRATIVE: CASE EVENT DATE: 20210530
